FAERS Safety Report 7010312-3 (Version None)
Quarter: 2010Q3

REPORT INFORMATION
  Report Type: 
  Country: None (occurrence: None)
  Receive Date: 20100923
  Receipt Date: 20100917
  Transmission Date: 20110219
  Serious: Yes (Life-Threatening)
  Sender: FDA-Public Use
  Company Number: B0495662A

PATIENT
  Age: 19 Year
  Sex: Female

DRUGS (14)
  1. ONDANSETRON [Suspect]
     Dosage: 24MG PER DAY
     Route: 042
  2. ACETAMINOPHEN [Suspect]
     Route: 042
  3. ACYCLOVIR SODIUM [Suspect]
  4. ALLOPURINOL [Suspect]
     Dosage: 300MG PER DAY
     Route: 048
  5. MORPHINE [Suspect]
     Route: 042
  6. CHLORPHENIRAMINE MALEATE [Suspect]
     Dosage: 40MG PER DAY
     Route: 042
  7. NORETHIDRONE [Suspect]
     Dosage: 15MG PER DAY
     Route: 048
  8. CYCLOSPORINE [Suspect]
  9. CASPOFUNGIN ACETATE [Suspect]
     Dosage: 70MG PER DAY
     Route: 042
  10. OMEPRAZOLE [Suspect]
  11. TAZOCIN [Suspect]
     Dosage: 13.5MG PER DAY
     Route: 042
  12. VORICONAZOLE [Suspect]
     Dosage: 400MG PER DAY
     Route: 048
  13. ETOPOPHOS PRESERVATIVE FREE [Suspect]
     Route: 042
     Dates: start: 20070915, end: 20070915
  14. KETALAR [Suspect]
     Route: 042
     Dates: start: 20070921, end: 20070928

REACTIONS (3)
  - DILATATION INTRAHEPATIC DUCT ACQUIRED [None]
  - HEPATOTOXICITY [None]
  - VENOOCCLUSIVE LIVER DISEASE [None]
